FAERS Safety Report 7213472-4 (Version None)
Quarter: 2011Q1

REPORT INFORMATION
  Report Type: 
  Country: None (occurrence: None)
  Receive Date: 20110106
  Receipt Date: 20101223
  Transmission Date: 20110831
  Serious: Yes (Other)
  Sender: FDA-Public Use
  Company Number: PHHY2010GB87637

PATIENT
  Age: 71 Year
  Sex: Female

DRUGS (11)
  1. METFORMIN HCL [Concomitant]
     Dosage: 500 MG, TID
  2. OMEGA-3 ACID [Concomitant]
  3. MULTI-VITAMIN [Concomitant]
  4. OMEPRAZOLE [Concomitant]
     Dosage: 20 MG, QD
     Route: 048
  5. FLOXACILLIN SODIUM [Suspect]
     Indication: CELLULITIS
     Dosage: UNK
     Route: 048
     Dates: start: 20101106, end: 20101129
  6. CEPHALEXIN [Concomitant]
     Dosage: 125 MG, QD
     Route: 048
  7. ASPIRIN [Concomitant]
     Dosage: 75 MG, QD
     Route: 048
  8. PENICILLIN V 'TYROL PHARMA' [Suspect]
     Indication: CELLULITIS
     Dosage: UNK
     Route: 048
     Dates: start: 20101106, end: 20101129
  9. ISOSORBIDE MONONITRATE [Concomitant]
     Dosage: 60 MG, QD
  10. ASCORBIC ACID [Concomitant]
  11. LOSARTAN POTASSIUM [Concomitant]
     Dosage: 100 MG, QD

REACTIONS (1)
  - JAUNDICE [None]
